FAERS Safety Report 23499511 (Version 1)
Quarter: 2024Q1

REPORT INFORMATION
  Report Type: Spontaneous
  Country: CN (occurrence: CN)
  Receive Date: 20240208
  Receipt Date: 20240208
  Transmission Date: 20240409
  Serious: Yes (Other)
  Sender: FDA-Public Use
  Company Number: None

PATIENT
  Age: 12 Year
  Sex: Male

DRUGS (1)
  1. IFOSFAMIDE [Suspect]
     Active Substance: IFOSFAMIDE
     Indication: Neoplasm malignant
     Dosage: 2.5 G, QD, INFUSION BOTTLE (20 ML), PREOPERATIVE CHEMOTHERAPY
     Route: 041
     Dates: start: 20231017, end: 20231021

REACTIONS (3)
  - Neoplasm malignant [Unknown]
  - Condition aggravated [Unknown]
  - Myelosuppression [Unknown]

NARRATIVE: CASE EVENT DATE: 20231021
